FAERS Safety Report 15291416 (Version 1)
Quarter: 2018Q3

REPORT INFORMATION
  Report Type: Spontaneous
  Country: US (occurrence: US)
  Receive Date: 20180805
  Receipt Date: 20180805
  Transmission Date: 20181010
  Serious: Yes (Hospitalization, Disabling)
  Sender: FDA-Public Use
  Company Number: None

PATIENT
  Age: 11 Year
  Sex: Female
  Weight: 38.7 kg

DRUGS (1)
  1. ENBREL [Suspect]
     Active Substance: ETANERCEPT
     Indication: JUVENILE IDIOPATHIC ARTHRITIS
     Dosage: ?          OTHER FREQUENCY:TWICE WEEKLY;?
     Route: 058

REACTIONS (9)
  - Blindness [None]
  - Fatigue [None]
  - Pelvic pain [None]
  - Constipation [None]
  - Neuralgia [None]
  - Hypoaesthesia [None]
  - Bladder pain [None]
  - Abdominal pain upper [None]
  - Drug dose omission [None]

NARRATIVE: CASE EVENT DATE: 20180805
